FAERS Safety Report 5858580-5 (Version None)
Quarter: 2008Q3

REPORT INFORMATION
  Report Type: 
  Country: None (occurrence: None)
  Receive Date: 20080826
  Receipt Date: 20080819
  Transmission Date: 20090109
  Serious: Yes (Other)
  Sender: FDA-Public Use
  Company Number: US-PFIZER INC-2008069565

PATIENT

DRUGS (1)
  1. LATANOPROST [Suspect]

REACTIONS (4)
  - BRONCHITIS [None]
  - NASOPHARYNGITIS [None]
  - PNEUMONIA [None]
  - SINUSITIS [None]
